FAERS Safety Report 23914678 (Version 1)
Quarter: 2024Q2

REPORT INFORMATION
  Report Type: Spontaneous
  Country: US (occurrence: None)
  Receive Date: 20240528
  Receipt Date: 20240528
  Transmission Date: 20240716
  Serious: Yes (Hospitalization)
  Sender: FDA-Public Use
  Company Number: None

PATIENT
  Age: 44 Year
  Sex: Female

DRUGS (3)
  1. MYCOPHENOLATE MOFETIL [Suspect]
     Active Substance: MYCOPHENOLATE MOFETIL
     Indication: Osteoarthritis
     Dosage: FREQUENCY : TWICE A DAY;?
     Route: 048
     Dates: start: 201807
  2. SILDENAFIL CITRATE [Concomitant]
  3. REMODULIN MDV [Concomitant]

REACTIONS (2)
  - Hypotension [None]
  - Swelling [None]

NARRATIVE: CASE EVENT DATE: 20240521
